FAERS Safety Report 6288276-X (Version None)
Quarter: 2009Q3

REPORT INFORMATION
  Report Type: 
  Country: None (occurrence: None)
  Receive Date: 20090729
  Receipt Date: 20090721
  Transmission Date: 20100115
  Serious: Yes (Death, Other)
  Sender: FDA-Public Use
  Company Number: US-PFIZER INC-2009228929

PATIENT
  Sex: Male

DRUGS (2)
  1. SUTENT [Suspect]
     Indication: RENAL CELL CARCINOMA
     Dosage: 50 MG, ALTERNATE DAY
     Dates: start: 20081101, end: 20090615
  2. ALIMTA [Suspect]
     Indication: RENAL CELL CARCINOMA
     Dosage: UNK
     Dates: start: 20090301

REACTIONS (4)
  - ADENOCARCINOMA [None]
  - DISEASE PROGRESSION [None]
  - NEUTROPENIA [None]
  - PANCYTOPENIA [None]
